FAERS Safety Report 25538179 (Version 1)
Quarter: 2025Q3

REPORT INFORMATION
  Report Type: Spontaneous
  Country: EU (occurrence: EU)
  Receive Date: 20250710
  Receipt Date: 20250710
  Transmission Date: 20251021
  Serious: Yes (Other)
  Sender: RANBAXY
  Company Number: EU-SUN PHARMACEUTICAL INDUSTRIES LTD-2025R1-515720

PATIENT
  Age: 85 Year
  Sex: Male

DRUGS (5)
  1. PREDNISONE [Suspect]
     Active Substance: PREDNISONE
     Indication: Pemphigoid
     Dosage: STARTING AT 30 MILLIGRAM, DAILY
     Route: 048
     Dates: start: 202205
  2. PREDNISONE [Suspect]
     Active Substance: PREDNISONE
     Dosage: REDUCING TO 5 MILLIGRAM , DAILY
     Route: 048
     Dates: start: 202401
  3. PREDNISONE [Suspect]
     Active Substance: PREDNISONE
     Dosage: 10 MILLIGRAM, DAILY
     Route: 048
     Dates: start: 202405, end: 202407
  4. DAPSONE [Suspect]
     Active Substance: DAPSONE
     Indication: Pemphigoid
     Dosage: 100 MILLIGRAM, DAILY
     Route: 065
     Dates: start: 202206
  5. DAPSONE [Suspect]
     Active Substance: DAPSONE
     Dosage: 50 MILLIGRAM, DAILY
     Route: 065
     Dates: start: 202311, end: 202407

REACTIONS (1)
  - Therapy partial responder [Unknown]
